FAERS Safety Report 14945199 (Version 1)
Quarter: 2018Q2

REPORT INFORMATION
  Report Type: Report from Study
  Country: DE (occurrence: DE)
  Receive Date: 20180529
  Receipt Date: 20180529
  Transmission Date: 20180711
  Serious: Yes (Death, Other)
  Sender: FDA-Public Use
  Company Number: DE-ROCHE-2129047

PATIENT
  Age: 60 Year
  Sex: Male

DRUGS (6)
  1. SIMVASTATIN. [Concomitant]
     Active Substance: SIMVASTATIN
  2. RAMIPRIL. [Concomitant]
     Active Substance: RAMIPRIL
  3. RAMIPLUS [Concomitant]
  4. SALBUTAMOL [Concomitant]
     Active Substance: ALBUTEROL
  5. TOCILIZUMAB. [Suspect]
     Active Substance: TOCILIZUMAB
     Indication: RHEUMATOID ARTHRITIS
     Route: 065
     Dates: end: 20180113
  6. PREDNISOLON [Concomitant]
     Active Substance: PREDNISOLONE

REACTIONS (5)
  - Alcohol abuse [Fatal]
  - Fall [Fatal]
  - Death [Fatal]
  - Internal haemorrhage [Fatal]
  - Rib fracture [Unknown]

NARRATIVE: CASE EVENT DATE: 20180113
